FAERS Safety Report 13273147 (Version 3)
Quarter: 2018Q4

REPORT INFORMATION
  Report Type: Report from Study
  Country: None (occurrence: US)
  Receive Date: 20170227
  Receipt Date: 20181112
  Transmission Date: 20190204
  Serious: Yes (Hospitalization, Other)
  Sender: FDA-Public Use
  Company Number: US-ABBVIE-16K-163-1810322-00

PATIENT
  Sex: Male
  Weight: 86.26 kg

DRUGS (2)
  1. HUMIRA [Suspect]
     Active Substance: ADALIMUMAB
     Indication: CROHN^S DISEASE
     Route: 058
     Dates: start: 201503, end: 201507
  2. HUMIRA [Suspect]
     Active Substance: ADALIMUMAB
     Route: 058
     Dates: start: 201701

REACTIONS (9)
  - Constipation [Unknown]
  - Nausea [Unknown]
  - Post procedural complication [Unknown]
  - Motion sickness [Unknown]
  - Colonic fistula [Recovered/Resolved]
  - Crohn^s disease [Unknown]
  - Wound infection [Recovered/Resolved]
  - Fluid intake reduced [Unknown]
  - Large intestinal stenosis [Recovered/Resolved]

NARRATIVE: CASE EVENT DATE: 2015
